FAERS Safety Report 16809126 (Version 2)
Quarter: 2019Q4

REPORT INFORMATION
  Report Type: Spontaneous
  Country: US (occurrence: US)
  Receive Date: 20190916
  Receipt Date: 20191028
  Transmission Date: 20200122
  Serious: Yes (Other)
  Sender: FDA-Public Use
  Company Number: US-BAYER-2019-167091

PATIENT
  Age: 67 Year
  Sex: Female
  Weight: 65 kg

DRUGS (2)
  1. MIRALAX [Suspect]
     Active Substance: POLYETHYLENE GLYCOL 3350
     Indication: POSTOPERATIVE CARE
     Dosage: UNK
     Dates: start: 201907, end: 201907
  2. MILK OF MAGNESIA ORIGINAL [Suspect]
     Active Substance: MAGNESIUM HYDROXIDE
     Indication: POSTOPERATIVE CARE
     Dosage: 15 ML, QD
     Route: 048
     Dates: start: 201907

REACTIONS (6)
  - Dyschezia [None]
  - Off label use [Unknown]
  - Frequent bowel movements [Unknown]
  - Product use in unapproved indication [None]
  - Incorrect dose administered [None]
  - Drug dependence [None]

NARRATIVE: CASE EVENT DATE: 201907
